FAERS Safety Report 11646967 (Version 1)
Quarter: 2015Q4

REPORT INFORMATION
  Report Type: Spontaneous
  Country: US (occurrence: US)
  Receive Date: 20151020
  Receipt Date: 20151020
  Transmission Date: 20160304
  Serious: No
  Sender: FDA-Public Use
  Company Number: US-009507513-1510USA004270

PATIENT
  Age: 19 Year
  Sex: Female

DRUGS (1)
  1. NEXPLANON [Suspect]
     Active Substance: ETONOGESTREL
     Indication: CONTRACEPTION
     Dosage: 1 DF, 1 ROD/ 3 YEARS, INSERTED LEFT ARM
     Route: 059
     Dates: start: 20150522

REACTIONS (3)
  - Haemorrhage [Unknown]
  - Menstruation irregular [Unknown]
  - Haemorrhage [Unknown]

NARRATIVE: CASE EVENT DATE: 2015
